FAERS Safety Report 9867311 (Version 2)
Quarter: 2014Q1

REPORT INFORMATION
  Report Type: Spontaneous
  Country: JP (occurrence: JP)
  Receive Date: 20140204
  Receipt Date: 20140313
  Transmission Date: 20141002
  Serious: Yes (Other)
  Sender: FDA-Public Use
  Company Number: JP-MPIJNJ-2014JNJ000242

PATIENT
  Sex: 0

DRUGS (10)
  1. VELCADE [Suspect]
     Indication: PLASMA CELL MYELOMA
     Dosage: 1.9 MG, QD
     Route: 065
     Dates: start: 20130726, end: 20130926
  2. ITRIZOLE [Suspect]
     Indication: ANTIFUNGAL PROPHYLAXIS
     Dosage: 200 MG, QD
     Route: 048
     Dates: start: 20130912, end: 20131015
  3. SELOKEN                            /00376902/ [Concomitant]
     Indication: HYPERTENSION
     Dosage: 60 MG, UNK
     Route: 048
     Dates: end: 20131015
  4. ADALAT CR [Concomitant]
     Indication: HYPERTENSION
     Dosage: 40 MG, UNK
     Dates: end: 20131015
  5. ALLOZYM [Concomitant]
     Indication: HYPERURICAEMIA
     Dosage: 75 MG, UNK
     Route: 048
     Dates: end: 20131015
  6. ZOVIRAX                            /00587301/ [Concomitant]
     Indication: PROPHYLAXIS
     Dosage: 200 MG, UNK
     Route: 048
     Dates: start: 20130810, end: 20131015
  7. NESP [Concomitant]
     Indication: NEPHROGENIC ANAEMIA
     Dosage: UNK
     Dates: start: 20130812, end: 20131011
  8. ALKERAN                            /00006401/ [Concomitant]
     Indication: PLASMA CELL MYELOMA
     Dosage: 10 MG, UNK
     Route: 048
     Dates: start: 20130726, end: 20130915
  9. PREDNISOLONE [Concomitant]
     Indication: PLASMA CELL MYELOMA
     Dosage: 90 MG, UNK
     Route: 048
     Dates: start: 20130726, end: 20130915
  10. FUROSEMIDE [Concomitant]
     Indication: HYPERTENSION
     Dosage: 20 MG, UNK
     Route: 048
     Dates: start: 20130919, end: 20130925

REACTIONS (1)
  - Weight increased [Recovering/Resolving]
